FAERS Safety Report 4897772-9 (Version None)
Quarter: 2006Q1

REPORT INFORMATION
  Report Type: 
  Country: None (occurrence: None)
  Receive Date: 20060130
  Receipt Date: 20060130
  Transmission Date: 20060701
  Serious: Yes (Other)
  Sender: FDA-Public Use
  Company Number: None

PATIENT
  Sex: Male
  Weight: 95.2554 kg

DRUGS (1)
  1. ELIDEL [Suspect]
     Indication: ROSACEA
     Dosage: SMALL TOPICAL DOSE DAILY TOP
     Route: 061
     Dates: start: 20040601, end: 20060120

REACTIONS (1)
  - BOWEN'S DISEASE [None]
